FAERS Safety Report 7624184 (Version 3)
Quarter: 2013Q3

REPORT INFORMATION
  Report Type: Report from Study
  Country: UG (occurrence: UG)
  Receive Date: 20101011
  Receipt Date: 20130829
  Transmission Date: 20140515
  Serious: Yes (Death, Hospitalization, Disabling)
  Sender: FDA-Public Use
  Company Number: UG-ABBOTT-10P-165-0676473-00

PATIENT
  Age: 29 Year
  Sex: Female

DRUGS (10)
  1. ALUVIA TABLETS [Suspect]
     Indication: HIV INFECTION
     Route: 048
     Dates: start: 20100818
  2. RALTEGRAVIR [Concomitant]
     Indication: HIV INFECTION
     Dates: start: 20100818
  3. CO-TRIMOXAZOLE [Concomitant]
     Indication: PRODUCT USED FOR UNKNOWN INDICATION
     Dates: start: 20061101
  4. STREPTOMYCIN [Concomitant]
     Indication: PRODUCT USED FOR UNKNOWN INDICATION
     Dates: start: 20100720
  5. ETHAMBUTOL [Concomitant]
     Indication: PRODUCT USED FOR UNKNOWN INDICATION
     Dates: start: 20100720
  6. ISONIAZID [Concomitant]
     Indication: PRODUCT USED FOR UNKNOWN INDICATION
     Dates: start: 20100720
  7. PYRAZINAMIDE [Concomitant]
     Indication: PRODUCT USED FOR UNKNOWN INDICATION
     Dates: start: 20100720
  8. RIFABUTIN [Concomitant]
     Indication: PRODUCT USED FOR UNKNOWN INDICATION
     Dates: start: 20100720
  9. ACYCLOVIR [Concomitant]
     Indication: PRODUCT USED FOR UNKNOWN INDICATION
     Dates: start: 20100818
  10. CEFTRIAXONE [Concomitant]
     Indication: PRODUCT USED FOR UNKNOWN INDICATION
     Dates: start: 20100818

REACTIONS (8)
  - Intracranial pressure increased [Fatal]
  - Toxoplasmosis [Fatal]
  - Pulmonary tuberculosis [Fatal]
  - Oesophageal candidiasis [Unknown]
  - Oral candidiasis [Unknown]
  - Cystitis [Unknown]
  - Pyrexia [Unknown]
  - Vomiting [Unknown]
